FAERS Safety Report 13063091 (Version 1)
Quarter: 2016Q4

REPORT INFORMATION
  Report Type: Spontaneous
  Country: FR (occurrence: FR)
  Receive Date: 20161227
  Receipt Date: 20161227
  Transmission Date: 20170207
  Serious: Yes (Hospitalization)
  Sender: FDA-Public Use
  Company Number: FR-009507513-1612FRA011230

PATIENT
  Age: 74 Year
  Sex: Male

DRUGS (2)
  1. INVANZ [Suspect]
     Active Substance: ERTAPENEM SODIUM
     Indication: UROSEPSIS
     Dosage: 500 MG, QD
     Route: 042
     Dates: start: 20161103, end: 201611
  2. INVANZ [Suspect]
     Active Substance: ERTAPENEM SODIUM
     Dosage: 250 MG, QD
     Route: 042
     Dates: start: 201611, end: 20161123

REACTIONS (2)
  - Condition aggravated [Recovered/Resolved]
  - Atrioventricular block second degree [Recovered/Resolved]

NARRATIVE: CASE EVENT DATE: 20161116
